FAERS Safety Report 15651443 (Version 1)
Quarter: 2018Q4

REPORT INFORMATION
  Report Type: Spontaneous
  Country: US (occurrence: US)
  Receive Date: 20181123
  Receipt Date: 20181123
  Transmission Date: 20190205
  Serious: No
  Sender: FDA-Public Use
  Company Number: US-SA-2018SA319119

PATIENT
  Age: 39 Year
  Sex: Female

DRUGS (12)
  1. DOXYCYCLA [Concomitant]
  2. PREDNISONE. [Concomitant]
     Active Substance: PREDNISONE
  3. CELLCEPT [MYCOPHENOLATE MOFETIL] [Concomitant]
  4. DESONIDE. [Concomitant]
     Active Substance: DESONIDE
  5. BETAMETHASONE. [Concomitant]
     Active Substance: BETAMETHASONE
  6. MIRVASO [Concomitant]
     Active Substance: BRIMONIDINE TARTRATE
  7. AVAR LS [Concomitant]
     Active Substance: SULFACETAMIDE SODIUM\SULFUR
  8. TRIAMCINOLONE [Concomitant]
     Active Substance: TRIAMCINOLONE
  9. SOOLANTRA [Concomitant]
     Active Substance: IVERMECTIN
  10. DUPIXENT [Suspect]
     Active Substance: DUPILUMAB
     Indication: DERMATITIS ATOPIC
     Dosage: 300 MG, QOW
     Route: 058
     Dates: start: 20180227
  11. LOTEMAX [Concomitant]
     Active Substance: LOTEPREDNOL ETABONATE
  12. EUCRISA [Concomitant]
     Active Substance: CRISABOROLE

REACTIONS (1)
  - Dermatitis [Unknown]

NARRATIVE: CASE EVENT DATE: 20181116
